FAERS Safety Report 15255615 (Version 1)
Quarter: 2018Q3

REPORT INFORMATION
  Report Type: Spontaneous
  Country: US (occurrence: US)
  Receive Date: 20180808
  Receipt Date: 20180808
  Transmission Date: 20181010
  Serious: Yes (Life-Threatening, Hospitalization)
  Sender: FDA-Public Use
  Company Number: US-TEVA-2018-US-938905

PATIENT
  Age: 59 Year
  Sex: Male

DRUGS (1)
  1. PROPOFOL. [Suspect]
     Active Substance: PROPOFOL
     Indication: SEDATION
     Route: 065

REACTIONS (5)
  - Arrhythmia [Unknown]
  - Hyperkalaemia [Unknown]
  - Condition aggravated [Unknown]
  - Ventricular fibrillation [Unknown]
  - Cardiac arrest [Unknown]
